FAERS Safety Report 12845075 (Version 1)
Quarter: 2016Q4

REPORT INFORMATION
  Report Type: Spontaneous
  Country: LB (occurrence: LB)
  Receive Date: 20161013
  Receipt Date: 20161013
  Transmission Date: 20170207
  Serious: Yes (Other)
  Sender: FDA-Public Use
  Company Number: LB-SCIEGEN PHARMACEUTICALS INC-2016SCILIT00452

PATIENT
  Age: 60 Year
  Sex: Female

DRUGS (3)
  1. GABAPENTIN CAPSULES [Suspect]
     Active Substance: GABAPENTIN
     Indication: VARICELLA ZOSTER VIRUS INFECTION
     Dosage: UNK
     Route: 048
  2. ACYCLOVIR. [Suspect]
     Active Substance: ACYCLOVIR
     Indication: VARICELLA ZOSTER VIRUS INFECTION
     Dosage: 10 MG/KG, TID
     Route: 051
  3. ANALGESICS [Suspect]
     Active Substance: UNSPECIFIED INGREDIENT
     Indication: VARICELLA ZOSTER VIRUS INFECTION
     Dosage: UNK
     Route: 042

REACTIONS (2)
  - Secondary progressive multiple sclerosis [Unknown]
  - Off label use [None]
